FAERS Safety Report 20159614 (Version 2)
Quarter: 2021Q4

REPORT INFORMATION
  Report Type: Spontaneous
  Country: FR (occurrence: FR)
  Receive Date: 20211208
  Receipt Date: 20211217
  Transmission Date: 20220303
  Serious: Yes (Death, Other)
  Sender: FDA-Public Use
  Company Number: FR-BRISTOL-MYERS SQUIBB COMPANY-BMS-2021-132739

PATIENT
  Age: 69 Year
  Sex: Male
  Weight: 62 kg

DRUGS (52)
  1. ELIQUIS [Suspect]
     Active Substance: APIXABAN
     Indication: Vena cava thrombosis
     Dosage: 0.5 PER DAY
     Route: 065
     Dates: start: 20200130, end: 20211106
  2. ATEZOLIZUMAB [Suspect]
     Active Substance: ATEZOLIZUMAB
     Indication: Non-small cell lung cancer metastatic
     Dosage: 1200 MILLIGRAM, Q3WK
     Route: 041
     Dates: start: 20190520
  3. ATEZOLIZUMAB [Suspect]
     Active Substance: ATEZOLIZUMAB
     Dosage: 1680 MILLIGRAM, Q4WK
     Route: 041
     Dates: start: 20200417, end: 20201221
  4. ATEZOLIZUMAB [Suspect]
     Active Substance: ATEZOLIZUMAB
     Dosage: 1.2 GRAM, Q3WK
     Route: 041
     Dates: start: 20190520
  5. ATEZOLIZUMAB [Suspect]
     Active Substance: ATEZOLIZUMAB
     Dosage: 1680 MILLIGRAM, Q4WK
     Route: 041
     Dates: start: 20200710
  6. ATEZOLIZUMAB [Suspect]
     Active Substance: ATEZOLIZUMAB
     Dosage: 1200 MILLIGRAM, Q3WK
     Route: 041
     Dates: start: 20190902
  7. ATEZOLIZUMAB [Suspect]
     Active Substance: ATEZOLIZUMAB
     Dosage: 1200 MILLIGRAM, Q3WK
     Route: 041
     Dates: start: 20191104
  8. ATEZOLIZUMAB [Suspect]
     Active Substance: ATEZOLIZUMAB
     Dosage: 1200 MILLIGRAM, Q3WK
     Route: 041
     Dates: start: 20200106
  9. ATEZOLIZUMAB [Suspect]
     Active Substance: ATEZOLIZUMAB
     Dosage: 1200 MILLIGRAM, Q3WK
     Route: 041
     Dates: start: 20191014
  10. ATEZOLIZUMAB [Suspect]
     Active Substance: ATEZOLIZUMAB
     Dosage: 1200 MILLIGRAM, Q3WK
     Route: 041
     Dates: start: 20190812
  11. ATEZOLIZUMAB [Suspect]
     Active Substance: ATEZOLIZUMAB
     Dosage: 1680 MILLIGRAM, Q4WK
     Route: 041
     Dates: start: 20200417
  12. ATEZOLIZUMAB [Suspect]
     Active Substance: ATEZOLIZUMAB
     Dosage: 1200 MILLIGRAM, Q3WK
     Route: 041
     Dates: start: 20190611
  13. ATEZOLIZUMAB [Suspect]
     Active Substance: ATEZOLIZUMAB
     Dosage: 1200 MILLIGRAM, Q3WK
     Route: 041
     Dates: start: 20200214
  14. ATEZOLIZUMAB [Suspect]
     Active Substance: ATEZOLIZUMAB
     Dosage: 1680 MILLIGRAM, Q4WK
     Route: 041
     Dates: start: 20200612
  15. ATEZOLIZUMAB [Suspect]
     Active Substance: ATEZOLIZUMAB
     Dosage: 1680 MILLIGRAM, Q4WK
     Route: 041
     Dates: start: 20200515
  16. ATEZOLIZUMAB [Suspect]
     Active Substance: ATEZOLIZUMAB
     Dosage: 1680 MILLIGRAM, Q4WK
     Route: 041
     Dates: start: 20201030
  17. ATEZOLIZUMAB [Suspect]
     Active Substance: ATEZOLIZUMAB
     Dosage: 1200 MILLIGRAM, Q3WK
     Route: 041
     Dates: start: 20190722
  18. ATEZOLIZUMAB [Suspect]
     Active Substance: ATEZOLIZUMAB
     Dosage: 1680 MILLIGRAM, Q4WK
     Route: 041
     Dates: start: 20201123
  19. ATEZOLIZUMAB [Suspect]
     Active Substance: ATEZOLIZUMAB
     Dosage: 1200 MILLIGRAM, Q3WK
     Route: 041
     Dates: start: 20190701
  20. ATEZOLIZUMAB [Suspect]
     Active Substance: ATEZOLIZUMAB
     Dosage: 1200 MILLIGRAM, Q3WK
     Route: 041
     Dates: start: 20200306
  21. ATEZOLIZUMAB [Suspect]
     Active Substance: ATEZOLIZUMAB
     Dosage: 1200 MILLIGRAM, Q3WK
     Route: 041
     Dates: start: 20191125
  22. ATEZOLIZUMAB [Suspect]
     Active Substance: ATEZOLIZUMAB
     Dosage: 1680 MILLIGRAM, Q4WK
     Route: 041
     Dates: start: 20201221
  23. ATEZOLIZUMAB [Suspect]
     Active Substance: ATEZOLIZUMAB
     Dosage: 1200 MILLIGRAM, Q3WK
     Route: 041
     Dates: start: 20191216
  24. ATEZOLIZUMAB [Suspect]
     Active Substance: ATEZOLIZUMAB
     Dosage: 1680 UNK, Q4WK
     Route: 041
     Dates: start: 20200904
  25. ATEZOLIZUMAB [Suspect]
     Active Substance: ATEZOLIZUMAB
     Dosage: 1200 MILLIGRAM, Q3WK
     Route: 041
     Dates: start: 20200327
  26. ATEZOLIZUMAB [Suspect]
     Active Substance: ATEZOLIZUMAB
     Dosage: 1200 UNK, Q3WK
     Route: 041
     Dates: start: 20190923
  27. PACLITAXEL [Concomitant]
     Active Substance: PACLITAXEL
     Indication: Non-small cell lung cancer
     Dosage: MEDICATION DOSE 45 AND 90
     Route: 065
  28. CARBOPLATIN [Concomitant]
     Active Substance: CARBOPLATIN
     Indication: Non-small cell lung cancer
     Dosage: MEDICATION DOSE 2 AND 6
     Route: 065
  29. OXYCONTIN [Concomitant]
     Active Substance: OXYCODONE HYDROCHLORIDE
     Indication: Product used for unknown indication
     Dosage: 0.5 PER DAY
     Route: 065
     Dates: start: 201911
  30. ALBUTEROL SULFATE [Concomitant]
     Active Substance: ALBUTEROL SULFATE
     Indication: Product used for unknown indication
     Dosage: UNK
     Route: 065
  31. KARDEGIC [Concomitant]
     Active Substance: ASPIRIN DL-LYSINE
     Indication: Product used for unknown indication
     Dosage: 11 PER DAY
     Route: 065
     Dates: start: 20190627
  32. LEVOFLOXACIN [Concomitant]
     Active Substance: LEVOFLOXACIN
     Indication: Bronchitis
     Dosage: UNK
     Route: 065
     Dates: start: 20190916, end: 20190922
  33. LEVOFLOXACIN [Concomitant]
     Active Substance: LEVOFLOXACIN
     Dosage: UNK
     Route: 065
     Dates: start: 201912, end: 20200111
  34. OXYCODONE HYDROCHLORIDE [Concomitant]
     Active Substance: OXYCODONE HYDROCHLORIDE
     Indication: Product used for unknown indication
     Dosage: UNK
     Route: 065
     Dates: start: 201911
  35. IPRATROPIUM [Concomitant]
     Active Substance: IPRATROPIUM
     Indication: Lung disorder
     Dosage: 0.33 PER DAY
     Route: 065
     Dates: start: 20200724
  36. TINZAPARIN SODIUM [Concomitant]
     Active Substance: TINZAPARIN SODIUM
     Indication: Product used for unknown indication
     Dosage: UNK
     Route: 065
     Dates: start: 20181019, end: 20200130
  37. TRANEXAMIC ACID [Concomitant]
     Active Substance: TRANEXAMIC ACID
     Indication: Lung disorder
     Dosage: 0.33 PER DAY
     Route: 065
     Dates: start: 20200727, end: 20200731
  38. ACETAMINOPHEN [Concomitant]
     Active Substance: ACETAMINOPHEN
     Indication: Prophylaxis
     Dosage: UNK
     Route: 065
     Dates: start: 20200805, end: 20200902
  39. LYRICA [Concomitant]
     Active Substance: PREGABALIN
     Indication: Product used for unknown indication
     Dosage: PER DAY
     Route: 065
     Dates: start: 20190510
  40. SERETIDE [Concomitant]
     Active Substance: FLUTICASONE PROPIONATE\SALMETEROL XINAFOATE
     Indication: Product used for unknown indication
     Dosage: 0.5 PER DAY
     Route: 065
  41. ETHAMSYLATE [Concomitant]
     Active Substance: ETHAMSYLATE
     Indication: Lung disorder
     Dates: start: 20200728, end: 20200731
  42. ALLOPURINOL [Concomitant]
     Active Substance: ALLOPURINOL
     Indication: Product used for unknown indication
     Dosage: PER DAY
     Route: 065
  43. CEFTRIAXONE [Concomitant]
     Active Substance: CEFTRIAXONE
     Indication: Product used for unknown indication
     Dosage: UNK
     Route: 065
     Dates: start: 20200723, end: 20200729
  44. TERBUTALINE [Concomitant]
     Active Substance: TERBUTALINE
     Indication: Lung disorder
     Dosage: 0.33 PER DAY
     Route: 065
     Dates: start: 20200724
  45. LEVOFLOXACIN [Concomitant]
     Active Substance: LEVOFLOXACIN
     Indication: Product used for unknown indication
     Dosage: UNK
     Route: 065
     Dates: start: 202010, end: 202010
  46. AMITRIPTYLINE HYDROCHLORIDE [Concomitant]
     Active Substance: AMITRIPTYLINE HYDROCHLORIDE
     Indication: Product used for unknown indication
     Dosage: UNK
     Route: 065
     Dates: start: 20210517
  47. PANTOPRAZOLE [Concomitant]
     Active Substance: PANTOPRAZOLE
     Indication: Product used for unknown indication
     Dosage: UNK, QD
     Route: 065
     Dates: start: 20210629
  48. CISPLATIN [Concomitant]
     Active Substance: CISPLATIN
     Indication: Neoplasm malignant
     Dosage: MEDICATION DOSE 80
     Route: 065
  49. VINORELBINE [Concomitant]
     Active Substance: VINORELBINE TARTRATE
     Indication: Neoplasm malignant
     Dosage: MEDICATION DOSE 30
     Route: 065
  50. INNOHEP [Concomitant]
     Active Substance: TINZAPARIN SODIUM
     Indication: Product used for unknown indication
     Dosage: PER DAY
     Route: 065
     Dates: start: 20210520
  51. DURVALUMAB [Concomitant]
     Active Substance: DURVALUMAB
     Indication: Neoplasm malignant
     Dosage: MEDICATION DOSE 10
     Route: 065
  52. PRIMPERAN [Concomitant]
     Active Substance: METOCLOPRAMIDE HYDROCHLORIDE
     Indication: Product used for unknown indication
     Dosage: UNK
     Route: 065
     Dates: start: 20210629

REACTIONS (1)
  - Death [Fatal]

NARRATIVE: CASE EVENT DATE: 20211106
